FAERS Safety Report 17018336 (Version 12)
Quarter: 2022Q1

REPORT INFORMATION
  Report Type: Report from Study
  Country: DE (occurrence: DE)
  Receive Date: 20191111
  Receipt Date: 20220218
  Transmission Date: 20220423
  Serious: Yes (Other)
  Sender: FDA-Public Use
  Company Number: NVSC2019DE029731

PATIENT
  Age: 6 Year
  Sex: Female
  Weight: 19.3 kg

DRUGS (13)
  1. ILARIS [Suspect]
     Active Substance: CANAKINUMAB
     Indication: Familial mediterranean fever
     Dosage: 4 MG/KG, EVERY 4 WEEKS
     Route: 058
     Dates: start: 20181203
  2. ILARIS [Suspect]
     Active Substance: CANAKINUMAB
     Dosage: 72 MG
     Route: 058
  3. ILARIS [Suspect]
     Active Substance: CANAKINUMAB
     Dosage: 78 MG
     Route: 058
     Dates: start: 20191002
  4. ILARIS [Suspect]
     Active Substance: CANAKINUMAB
     Dosage: 108 MG
     Route: 058
     Dates: start: 20200121
  5. ILARIS [Suspect]
     Active Substance: CANAKINUMAB
     Dosage: 86 MG
     Route: 058
  6. ILARIS [Suspect]
     Active Substance: CANAKINUMAB
     Dosage: 84 MG
     Route: 058
  7. ILARIS [Suspect]
     Active Substance: CANAKINUMAB
     Dosage: 84 MG
     Route: 058
  8. ILARIS [Suspect]
     Active Substance: CANAKINUMAB
     Dosage: 4 MG/KG, EVERY 4 WEEKS
     Route: 058
     Dates: start: 20190210
  9. ILARIS [Suspect]
     Active Substance: CANAKINUMAB
     Dosage: 84 MG
     Route: 058
     Dates: start: 20200417
  10. ILARIS [Suspect]
     Active Substance: CANAKINUMAB
     Dosage: 84 MG
     Route: 058
     Dates: start: 20200615
  11. ILARIS [Suspect]
     Active Substance: CANAKINUMAB
     Dosage: 86 MG
     Route: 058
     Dates: start: 20201004
  12. INFLUENZA VIRUS VACCINE [Suspect]
     Active Substance: INFLUENZA VIRUS VACCINE
     Indication: Product used for unknown indication
     Dosage: UNK (SINGLE SHOT)
     Route: 030
     Dates: start: 20201019
  13. COLCHICINE [Concomitant]
     Active Substance: COLCHICINE
     Indication: Product used for unknown indication
     Dosage: 0.5 , BID
     Route: 065

REACTIONS (10)
  - Bacterial pyelonephritis [Recovered/Resolved]
  - Skin papilloma [Unknown]
  - Scarlet fever [Recovered/Resolved]
  - Urinary tract infection [Recovered/Resolved]
  - Cystitis [Recovering/Resolving]
  - Urinary tract infection [Recovered/Resolved]
  - Urinary tract infection [Recovered/Resolved]
  - Pyrexia [Recovered/Resolved]
  - Vaccination site swelling [Recovered/Resolved]
  - Protein total increased [Unknown]

NARRATIVE: CASE EVENT DATE: 20190201
